FAERS Safety Report 17517918 (Version 2)
Quarter: 2020Q1

REPORT INFORMATION
  Report Type: Report from Study
  Country: AU (occurrence: AU)
  Receive Date: 20200309
  Receipt Date: 20200316
  Transmission Date: 20200409
  Serious: Yes (Hospitalization)
  Sender: FDA-Public Use
  Company Number: AU-JNJFOC-20200237791

PATIENT
  Age: 34 Year
  Sex: Female

DRUGS (1)
  1. STELARA [Suspect]
     Active Substance: USTEKINUMAB
     Indication: CROHN^S DISEASE
     Route: 042
     Dates: start: 20200107

REACTIONS (10)
  - Dyspnoea [Unknown]
  - Throat irritation [Unknown]
  - Renal pain [Unknown]
  - Headache [Unknown]
  - Fatigue [Unknown]
  - Wheezing [Unknown]
  - Skin infection [Recovered/Resolved]
  - Pruritus [Recovered/Resolved]
  - Painful respiration [Unknown]
  - Crohn^s disease [Unknown]

NARRATIVE: CASE EVENT DATE: 202002
